FAERS Safety Report 17283709 (Version 2)
Quarter: 2020Q1

REPORT INFORMATION
  Report Type: Spontaneous
  Country: BR (occurrence: BR)
  Receive Date: 20200117
  Receipt Date: 20200217
  Transmission Date: 20200409
  Serious: Yes (Other)
  Sender: FDA-Public Use
  Company Number: BR-PFIZER INC-2020018732

PATIENT
  Age: 82 Year
  Sex: Male
  Weight: 98 kg

DRUGS (7)
  1. GLIFAGE [Concomitant]
     Active Substance: METFORMIN HYDROCHLORIDE
     Indication: DIABETES MELLITUS
     Dosage: 3 DF, DAILY (KEEP IN 100, 110 AND 120 AT MAXIMUM)
     Dates: start: 2017
  2. ASPIRINA PREVENT [Concomitant]
     Active Substance: ASPIRIN
     Dosage: UNK
     Dates: start: 2017
  3. NEOVITE LUTEIN [Concomitant]
     Indication: VISUAL IMPAIRMENT
     Dosage: UNK
     Dates: start: 2017
  4. SUSTRATE [Concomitant]
     Active Substance: PROPATYL NITRATE
     Indication: MYOCARDIAL INFARCTION
     Dosage: UNK
     Dates: start: 2017
  5. RITMONORM [Concomitant]
     Active Substance: PROPAFENONE HYDROCHLORIDE
     Indication: HEART RATE ABNORMAL
     Dosage: UNK
     Dates: start: 2017
  6. BRILINTA [Concomitant]
     Active Substance: TICAGRELOR
     Dosage: UNK
     Dates: start: 2017
  7. ALPRAZOLAM. [Suspect]
     Active Substance: ALPRAZOLAM
     Indication: INSOMNIA
     Dosage: 2 MG, SINGLE
     Dates: start: 2019, end: 2019

REACTIONS (2)
  - Drug ineffective [Recovered/Resolved]
  - Hallucination, visual [Recovered/Resolved]

NARRATIVE: CASE EVENT DATE: 2019
